FAERS Safety Report 7178725-7 (Version None)
Quarter: 2010Q4

REPORT INFORMATION
  Report Type: 
  Country: None (occurrence: None)
  Receive Date: 20101221
  Receipt Date: 20101214
  Transmission Date: 20110411
  Serious: Yes (Other)
  Sender: FDA-Public Use
  Company Number: US-AMGEN-USASP2010009274

PATIENT

DRUGS (6)
  1. ENBREL [Suspect]
     Indication: RHEUMATOID ARTHRITIS
     Dosage: 50 MG, UNK
  2. NEXIUM [Concomitant]
  3. HYDROCHLOROTHIAZIDE [Concomitant]
  4. PROPRANOLOL [Concomitant]
  5. SIMVASTATIN [Concomitant]
  6. POTASSIUM 99 [Concomitant]

REACTIONS (2)
  - RETINAL DETACHMENT [None]
  - VITREOUS FLOATERS [None]
